FAERS Safety Report 4410700-5 (Version None)
Quarter: 2004Q3

REPORT INFORMATION
  Report Type: 
  Country: None (occurrence: None)
  Receive Date: 20040726
  Receipt Date: 20040609
  Transmission Date: 20050211
  Serious: Yes (Other)
  Sender: FDA-Public Use
  Company Number: 2004038676

PATIENT

DRUGS (1)
  1. LIPITOR [Suspect]
     Indication: ILL-DEFINED DISORDER
     Dosage: 160 MG *90 MG, 2 IN 1 D)

REACTIONS (2)
  - HEPATOTOXICITY [None]
  - RENAL FAILURE ACUTE [None]
